FAERS Safety Report 5002941-3 (Version None)
Quarter: 2006Q2

REPORT INFORMATION
  Report Type: 
  Country: None (occurrence: None)
  Receive Date: 20060516
  Receipt Date: 20060512
  Transmission Date: 20061013
  Serious: Yes (Hospitalization, Other)
  Sender: FDA-Public Use
  Company Number: 2004A2000050

PATIENT
  Age: 1 Week
  Sex: Male
  Weight: 2.5 kg

DRUGS (1)
  1. ZIDOVUDINE [Suspect]
     Dosage: 12MG TWICE PER DAY
     Route: 048
     Dates: start: 20040926

REACTIONS (3)
  - ANAEMIA [None]
  - NEUTROPENIA [None]
  - SEPSIS [None]
